FAERS Safety Report 10251022 (Version 3)
Quarter: 2014Q4

REPORT INFORMATION
  Report Type: Spontaneous
  Country: IT (occurrence: IT)
  Receive Date: 20140620
  Receipt Date: 20141001
  Transmission Date: 20150528
  Serious: Yes (Hospitalization)
  Sender: FDA-Public Use
  Company Number: IT-PFIZER INC-2014153814

PATIENT
  Age: 41 Year
  Sex: Male

DRUGS (2)
  1. FAMPRIDINE [Concomitant]
     Active Substance: DALFAMPRIDINE
     Dosage: 4 MG, UNK
     Route: 048
  2. NEURONTIN [Suspect]
     Active Substance: GABAPENTIN
     Indication: MUSCLE SPASMS
     Dosage: 400 MG, DAILY
     Route: 048
     Dates: start: 20140527, end: 20140528

REACTIONS (1)
  - Renal colic [Unknown]

NARRATIVE: CASE EVENT DATE: 20140527
